FAERS Safety Report 5069182-5 (Version None)
Quarter: 2006Q3

REPORT INFORMATION
  Report Type: 
  Country: None (occurrence: None)
  Receive Date: 20060717
  Receipt Date: 20060110
  Transmission Date: 20061208
  Serious: No
  Sender: FDA-Public Use
  Company Number: 2005001368

PATIENT
  Age: 72 Year
  Sex: Female

DRUGS (3)
  1. TARCEVA [Suspect]
     Indication: PANCREATIC CARCINOMA
     Dosage: SEE IMAGE
     Route: 048
     Dates: start: 20050701, end: 20051001
  2. TARCEVA [Suspect]
     Indication: PANCREATIC CARCINOMA
     Dosage: SEE IMAGE
     Route: 048
     Dates: start: 20050701, end: 20051001
  3. GEMCITABINE [Concomitant]

REACTIONS (4)
  - ACCIDENTAL OVERDOSE [None]
  - DIARRHOEA [None]
  - NO ADVERSE DRUG EFFECT [None]
  - NO ADVERSE EFFECT [None]
